FAERS Safety Report 19688674 (Version 2)
Quarter: 2021Q3

REPORT INFORMATION
  Report Type: Spontaneous
  Country: US (occurrence: US)
  Receive Date: 20210812
  Receipt Date: 20210825
  Transmission Date: 20211014
  Serious: Yes (Other)
  Sender: FDA-Public Use
  Company Number: US-BLUEPRINT MEDICINES CORPORATION-SP-US-2021-001243

PATIENT
  Age: 71 Year
  Sex: Female

DRUGS (1)
  1. AYVAKIT [Suspect]
     Active Substance: AVAPRITINIB
     Indication: GASTROINTESTINAL STROMAL TUMOUR
     Route: 048
     Dates: start: 20200208

REACTIONS (12)
  - Neuropathy peripheral [Unknown]
  - Blood creatinine increased [Unknown]
  - Off label use [Unknown]
  - Raynaud^s phenomenon [Unknown]
  - Sacroiliitis [Unknown]
  - Sjogren^s syndrome [Unknown]
  - Pain [Unknown]
  - Blood potassium increased [Unknown]
  - Basal cell carcinoma [Unknown]
  - Nocturia [Unknown]
  - Neuralgia [Unknown]
  - Product dose omission issue [Unknown]

NARRATIVE: CASE EVENT DATE: 20200208
